FAERS Safety Report 9168369 (Version 1)
Quarter: 2013Q1

REPORT INFORMATION
  Report Type: Spontaneous
  Country: GB (occurrence: None)
  Receive Date: 20130307
  Receipt Date: 20130307
  Transmission Date: 20140127
  Serious: Yes (Hospitalization)
  Sender: FDA-Public Use
  Company Number: NSR_01049_2013

PATIENT
  Age: 26 Year
  Sex: Female

DRUGS (3)
  1. TRAMADOL [Suspect]
     Indication: ANALGESIC THERAPY
  2. FENTANYL (FENTANYL) [Suspect]
     Indication: ANALGESIC THERAPY
  3. ORAMORPH [Suspect]
     Indication: ANALGESIC THERAPY

REACTIONS (1)
  - Narcotic bowel syndrome [None]
